FAERS Safety Report 9271272 (Version 1)
Quarter: 2013Q2

REPORT INFORMATION
  Report Type: Report from Study
  Country: DE (occurrence: DE)
  Receive Date: 20130506
  Receipt Date: 20130506
  Transmission Date: 20140414
  Serious: Yes (Hospitalization)
  Sender: FDA-Public Use
  Company Number: PHHY2013DE044249

PATIENT
  Sex: Female
  Weight: 74 kg

DRUGS (4)
  1. METFORMIN, VILDAGLIPTIN [Suspect]
     Indication: DIABETES MELLITUS
     Dosage: 1 DF (2000 MG METF, 100 MG VILD), DAILY
     Dates: start: 20120919, end: 20120930
  2. EXFORGE [Suspect]
     Indication: HYPERTENSION
     Dosage: 1 DF (160 MG AMLO,10 MG VALS), DAILY
     Dates: start: 20080702
  3. HYDROCHLOROTHIAZIDE [Concomitant]
     Indication: HYPERTENSION
     Dosage: 12.5 MG, DAILY
     Dates: start: 20111111
  4. ACETYLSALICYLIC ACID [Concomitant]
     Indication: CEREBROVASCULAR ACCIDENT
     Dosage: 100 MG, DAILY
     Dates: start: 20081218

REACTIONS (2)
  - Intervertebral disc protrusion [Recovering/Resolving]
  - Somnolence [Recovered/Resolved]
